FAERS Safety Report 21259466 (Version 1)
Quarter: 2022Q3

REPORT INFORMATION
  Report Type: Spontaneous
  Country: SA (occurrence: SA)
  Receive Date: 20220826
  Receipt Date: 20220826
  Transmission Date: 20221027
  Serious: Yes (Hospitalization, Other)
  Sender: FDA-Public Use
  Company Number: None

PATIENT
  Sex: Male

DRUGS (9)
  1. FUROSEMIDE [Suspect]
     Active Substance: FUROSEMIDE
     Indication: Hypervolaemia
     Route: 065
  2. FUROSEMIDE [Suspect]
     Active Substance: FUROSEMIDE
     Indication: Cardiac failure
     Route: 042
  3. FUROSEMIDE [Suspect]
     Active Substance: FUROSEMIDE
     Route: 042
  4. FUROSEMIDE [Suspect]
     Active Substance: FUROSEMIDE
     Route: 042
  5. FUROSEMIDE [Suspect]
     Active Substance: FUROSEMIDE
     Route: 048
  6. FUROSEMIDE [Suspect]
     Active Substance: FUROSEMIDE
     Route: 048
  7. BISOPROLOL [Concomitant]
     Active Substance: BISOPROLOL
     Indication: Cardiac failure
     Route: 065
  8. SACUBITRIL\VALSARTAN [Concomitant]
     Active Substance: SACUBITRIL\VALSARTAN
     Indication: Cardiac failure
     Dosage: 24/26MG
     Route: 065
  9. SPIRONOLACTONE [Concomitant]
     Active Substance: SPIRONOLACTONE
     Indication: Cardiac failure
     Route: 065

REACTIONS (1)
  - Hypernatraemia [Recovered/Resolved]
